FAERS Safety Report 8178841-7 (Version None)
Quarter: 2012Q1

REPORT INFORMATION
  Report Type: 
  Country: None (occurrence: None)
  Receive Date: 20120302
  Receipt Date: 20111202
  Transmission Date: 20120608
  Serious: Yes (Other)
  Sender: FDA-Public Use
  Company Number: JP-PAR PHARMACEUTICAL, INC-2011SCPR003433

PATIENT

DRUGS (5)
  1. MIDAZOLAM [Suspect]
     Dosage: 0.2 MG, TWICE
     Route: 042
  2. MIDAZOLAM [Suspect]
     Indication: TACHYPNOEA
     Dosage: 0.5 MG, SINGLE
     Route: 042
  3. MIDAZOLAM [Suspect]
     Dosage: 0.3 MG, SINGLE
     Route: 042
  4. MIDAZOLAM [Suspect]
     Dosage: 0.2 MG/KG/HOUR CONTINUOUS DRIP
     Route: 042
  5. DIAZEPAM [Suspect]
     Indication: CONVULSION NEONATAL
     Dosage: 1 MG (0.35 MG/KG)

REACTIONS (2)
  - CONVULSION [None]
  - CONVULSION NEONATAL [None]
